FAERS Safety Report 7235063-1 (Version None)
Quarter: 2011Q1

REPORT INFORMATION
  Report Type: 
  Country: None (occurrence: None)
  Receive Date: 20110120
  Receipt Date: 20110110
  Transmission Date: 20110831
  Serious: Yes (Hospitalization)
  Sender: FDA-Public Use
  Company Number: US-CELGENEUS-163-20785-10121812

PATIENT
  Sex: Male

DRUGS (2)
  1. THALOMID [Suspect]
     Route: 048
     Dates: start: 20061101, end: 20101201
  2. THALOMID [Suspect]
     Route: 048
     Dates: start: 20060301

REACTIONS (3)
  - CORONARY ARTERY DISEASE [None]
  - MULTIPLE MYELOMA [None]
  - DRUG INEFFECTIVE [None]
